FAERS Safety Report 16987242 (Version 1)
Quarter: 2019Q4

REPORT INFORMATION
  Report Type: Spontaneous
  Country: IT (occurrence: IT)
  Receive Date: 20191102
  Receipt Date: 20191102
  Transmission Date: 20200122
  Serious: Yes (Other)
  Sender: FDA-Public Use
  Company Number: IT-ACCORD-159371

PATIENT
  Age: 53 Year
  Sex: Female

DRUGS (7)
  1. BROMAZEPAM [Concomitant]
     Active Substance: BROMAZEPAM
  2. METHOTREXATE. [Suspect]
     Active Substance: METHOTREXATE
     Indication: PRODUCT USED FOR UNKNOWN INDICATION
  3. DIBASE [Concomitant]
     Active Substance: CHOLECALCIFEROL
     Dosage: 10,000 U.I./ML ORAL DROPS, SOLUTION
  4. EUTIROX [Concomitant]
     Active Substance: LEVOTHYROXINE SODIUM
  5. DOMPERIDONE [Concomitant]
     Active Substance: DOMPERIDONE
  6. LIVIAL [Concomitant]
     Active Substance: TIBOLONE
  7. OMEPRAZEN [Concomitant]
     Active Substance: OMEPRAZOLE

REACTIONS (4)
  - Abdominal distension [Unknown]
  - Alopecia [Unknown]
  - Dysentery [Unknown]
  - Irritable bowel syndrome [Unknown]
